FAERS Safety Report 7730011-X (Version None)
Quarter: 2011Q3

REPORT INFORMATION
  Report Type: 
  Country: None (occurrence: None)
  Receive Date: 20110906
  Receipt Date: 20110830
  Transmission Date: 20111222
  Serious: Yes (Hospitalization)
  Sender: FDA-Public Use
  Company Number: FR-ROCHE-799825

PATIENT
  Sex: Female
  Weight: 83 kg

DRUGS (7)
  1. LEVOTHYROXINE SODIUM [Concomitant]
     Dosage: ON EDOSE IN MORNING
  2. OFLOXACIN [Suspect]
     Route: 048
     Dates: start: 20110623, end: 20110628
  3. DESLORATADINE [Concomitant]
     Dosage: ONE DOSE IN MORNING
  4. ROCEPHIN [Suspect]
     Route: 048
     Dates: start: 20110628, end: 20110701
  5. VALSARTAN  AND HYDROCHLOROTHIAZIDE [Concomitant]
     Dosage: ON DOSE IN MORNING
  6. LYRICA [Concomitant]
     Dosage: ONE DOSE IN THE MORNING
  7. JANUMET [Concomitant]

REACTIONS (1)
  - PANCYTOPENIA [None]
